FAERS Safety Report 18932243 (Version 2)
Quarter: 2021Q2

REPORT INFORMATION
  Report Type: Spontaneous
  Country: US (occurrence: US)
  Receive Date: 20210223
  Receipt Date: 20210526
  Transmission Date: 20210717
  Serious: Yes (Death, Other)
  Sender: FDA-Public Use
  Company Number: US-BRISTOL-MYERS SQUIBB COMPANY-BMS-2021-017693

PATIENT
  Age: 67 Year
  Sex: Female

DRUGS (2)
  1. YERVOY [Suspect]
     Active Substance: IPILIMUMAB
     Indication: LUNG NEOPLASM MALIGNANT
     Dosage: 60 MILLIGRAM, Q6WK
     Route: 042
     Dates: start: 20201215
  2. OPDIVO [Suspect]
     Active Substance: NIVOLUMAB
     Indication: LUNG NEOPLASM MALIGNANT
     Dosage: 181 MILLIGRAM, Q6WK
     Route: 042
     Dates: start: 20201215

REACTIONS (2)
  - Death [Fatal]
  - Intentional product use issue [Unknown]
